FAERS Safety Report 5052299-9 (Version None)
Quarter: 2006Q3

REPORT INFORMATION
  Report Type: 
  Country: None (occurrence: None)
  Receive Date: 20060717
  Receipt Date: 20060706
  Transmission Date: 20061208
  Serious: Yes (Other)
  Sender: FDA-Public Use
  Company Number: DE-ABBOTT-06P-062-0337666-00

PATIENT
  Sex: Male

DRUGS (4)
  1. ERGENYL CHRONO TABLETS [Suspect]
     Indication: EPILEPSY
     Route: 048
     Dates: start: 20060206, end: 20060210
  2. ERGENYL CHRONO TABLETS [Suspect]
     Route: 048
     Dates: start: 20060211, end: 20060516
  3. ERGENYL CHRONO TABLETS [Suspect]
     Route: 048
     Dates: start: 20060517, end: 20060609
  4. ERGENYL CHRONO TABLETS [Suspect]
     Route: 048
     Dates: start: 20060610

REACTIONS (6)
  - DRUG LEVEL INCREASED [None]
  - FATIGUE [None]
  - HAEMATEMESIS [None]
  - INFECTION [None]
  - LEUKOPENIA [None]
  - THROMBOCYTOPENIA [None]
